FAERS Safety Report 5604411-8 (Version None)
Quarter: 2008Q1

REPORT INFORMATION
  Report Type: 
  Country: None (occurrence: None)
  Receive Date: 20080123
  Receipt Date: 20080123
  Transmission Date: 20080703
  Serious: Yes (Death)
  Sender: FDA-Public Use
  Company Number: None

PATIENT
  Sex: Male
  Weight: 122.4712 kg

DRUGS (2)
  1. AVELOX [Suspect]
     Indication: BRONCHITIS
     Dates: start: 20071119, end: 20071121
  2. AVELOX [Suspect]
     Indication: SINUSITIS
     Dates: start: 20071119, end: 20071121

REACTIONS (4)
  - DIZZINESS [None]
  - FEELING ABNORMAL [None]
  - SUDDEN CARDIAC DEATH [None]
  - UNRESPONSIVE TO STIMULI [None]
